FAERS Safety Report 15599447 (Version 8)
Quarter: 2019Q4

REPORT INFORMATION
  Report Type: Report from Study
  Country: LB (occurrence: LB)
  Receive Date: 20181108
  Receipt Date: 20191203
  Transmission Date: 20200122
  Serious: Yes (Other)
  Sender: FDA-Public Use
  Company Number: LB-SEATTLE GENETICS-2018SGN02866

PATIENT
  Sex: Female

DRUGS (1)
  1. BRENTUXIMAB VEDOTIN-MPI [Suspect]
     Active Substance: BRENTUXIMAB VEDOTIN
     Indication: HODGKIN^S DISEASE
     Dosage: 150 MG, UNK
     Route: 042
     Dates: start: 20180914

REACTIONS (8)
  - Diarrhoea [Unknown]
  - Axillary mass [Unknown]
  - Hypoaesthesia [Unknown]
  - Fatigue [Unknown]
  - Pain [Unknown]
  - Platelet count decreased [Unknown]
  - Decreased immune responsiveness [Unknown]
  - Axillary pain [Unknown]
